FAERS Safety Report 6868656-1 (Version None)
Quarter: 2010Q3

REPORT INFORMATION
  Report Type: 
  Country: None (occurrence: None)
  Receive Date: 20100721
  Receipt Date: 20100721
  Transmission Date: 20110219
  Serious: Yes (Disabling)
  Sender: FDA-Public Use
  Company Number: None

PATIENT
  Sex: Female
  Weight: 40.8237 kg

DRUGS (1)
  1. DEXFERRUM [Suspect]
     Indication: IRON DEFICIENCY ANAEMIA
     Dosage: 100MG -APPROX.25MG INFUSED 1ST DOSE WEEKLY IV DRIP, SINGLE DOSE
     Route: 041
     Dates: start: 20100720, end: 20100720

REACTIONS (3)
  - BACK PAIN [None]
  - INFUSION RELATED REACTION [None]
  - LOSS OF CONSCIOUSNESS [None]
